FAERS Safety Report 13405525 (Version 1)
Quarter: 2017Q2

REPORT INFORMATION
  Report Type: Spontaneous
  Country: US (occurrence: US)
  Receive Date: 20170405
  Receipt Date: 20170405
  Transmission Date: 20170830
  Serious: No
  Sender: FDA-Public Use
  Company Number: US-ASTRAZENECA-2017SE34801

PATIENT
  Age: 77 Year
  Sex: Male
  Weight: 88.3 kg

DRUGS (12)
  1. METOPROLOL SUCCINATE. [Suspect]
     Active Substance: METOPROLOL SUCCINATE
     Indication: BLOOD PRESSURE MEASUREMENT
     Route: 048
  2. LOVAZA [Concomitant]
     Active Substance: OMEGA-3-ACID ETHYL ESTERS
     Indication: STENT PLACEMENT
     Dosage: 1GM, TWO IN MORNING, AND 2 AT NIGHT
  3. CENTRUM SILVER [Concomitant]
     Active Substance: MINERALS\VITAMINS
  4. VIAGRA [Suspect]
     Active Substance: SILDENAFIL CITRATE
     Indication: ERECTILE DYSFUNCTION
     Route: 048
     Dates: start: 20170318
  5. RAMIPRIL. [Concomitant]
     Active Substance: RAMIPRIL
  6. REPATHA [Concomitant]
     Active Substance: EVOLOCUMAB
     Dosage: GIVES HIMSELF SHOTS EVERY 2 WEEKS
  7. CRESTOR [Suspect]
     Active Substance: ROSUVASTATIN CALCIUM
     Route: 048
  8. LOVAZA [Concomitant]
     Active Substance: OMEGA-3-ACID ETHYL ESTERS
     Indication: LIPID METABOLISM DISORDER
     Dosage: 1GM, TWO IN MORNING, AND 2 AT NIGHT
  9. LOVAZA [Concomitant]
     Active Substance: OMEGA-3-ACID ETHYL ESTERS
     Indication: MYOCARDIAL INFARCTION
     Dosage: 1GM, TWO IN MORNING, AND 2 AT NIGHT
  10. PLAVIX [Concomitant]
     Active Substance: CLOPIDOGREL BISULFATE
  11. VIAGRA [Suspect]
     Active Substance: SILDENAFIL CITRATE
     Indication: ERECTILE DYSFUNCTION
     Dosage: 50 MG,2 SAMPLE BOXES OF 2 TABLETS EACH, 4 TABLETS TOTAL VIAGRA.
     Route: 048
  12. ECOTRIN [Concomitant]
     Active Substance: ASPIRIN

REACTIONS (4)
  - Renal disorder [Unknown]
  - Drug ineffective [Unknown]
  - Off label use [Unknown]
  - Intentional product misuse [Unknown]
